FAERS Safety Report 10453257 (Version 4)
Quarter: 2014Q4

REPORT INFORMATION
  Report Type: Spontaneous
  Country: US (occurrence: US)
  Receive Date: 20140915
  Receipt Date: 20141110
  Transmission Date: 20150528
  Serious: Yes (Other)
  Sender: FDA-Public Use
  Company Number: US-PFIZER INC-2014238986

PATIENT
  Age: 61 Year
  Sex: Male
  Weight: 132 kg

DRUGS (11)
  1. NORVASC [Concomitant]
     Active Substance: AMLODIPINE BESYLATE
     Dosage: 10 MG, DAILY
     Route: 048
  2. COUMADIN [Concomitant]
     Active Substance: WARFARIN SODIUM
     Dosage: 4 MG, UNK
     Route: 048
  3. PRINIVIL [Concomitant]
     Active Substance: LISINOPRIL
     Dosage: 40 MG, UNK
     Route: 048
  4. ALDACTONE [Concomitant]
     Active Substance: SPIRONOLACTONE
     Dosage: 25 MG, DAILY
     Route: 048
  5. BETAPACE [Concomitant]
     Active Substance: SOTALOL HYDROCHLORIDE
     Dosage: 120 MG, 2X/DAY
     Route: 048
  6. CELEBREX [Suspect]
     Active Substance: CELECOXIB
     Dosage: UNK
  7. KEPPRA [Concomitant]
     Active Substance: LEVETIRACETAM
     Dosage: 750 MG, 2X/DAY (500 MG 11/2)
     Route: 048
  8. CELEBREX [Suspect]
     Active Substance: CELECOXIB
     Indication: INFLAMMATION
     Dosage: 200 MG, DAILY
  9. ZESTRIL [Concomitant]
     Active Substance: LISINOPRIL
     Dosage: 40 MG, UNK
     Route: 048
  10. DILANTIN [Concomitant]
     Active Substance: PHENYTOIN
     Dosage: 100 MG, 3X/DAY
     Route: 048
  11. ULTRAM [Concomitant]
     Active Substance: TRAMADOL HYDROCHLORIDE
     Dosage: 50 MG, AS NEEDED (EVERY 6 HOURS)
     Route: 048

REACTIONS (4)
  - Drug ineffective [Unknown]
  - Impaired work ability [Unknown]
  - Arthropathy [Unknown]
  - Arthralgia [Unknown]
